FAERS Safety Report 21666024 (Version 2)
Quarter: 2022Q4

REPORT INFORMATION
  Report Type: Spontaneous
  Country: US (occurrence: US)
  Receive Date: 20221201
  Receipt Date: 20221208
  Transmission Date: 20230113
  Serious: No
  Sender: FDA-Public Use
  Company Number: US-UNITED THERAPEUTICS-UNT-2022-028204

PATIENT
  Sex: Female
  Weight: 56.689 kg

DRUGS (3)
  1. TYVASO DPI [Suspect]
     Active Substance: TREPROSTINIL
     Indication: Pulmonary arterial hypertension
     Dosage: UNK
     Dates: start: 20221024, end: 20221126
  2. TYVASO DPI [Suspect]
     Active Substance: TREPROSTINIL
     Dosage: 16 ?G, QID
     Dates: start: 2022
  3. TYVASO DPI [Suspect]
     Active Substance: TREPROSTINIL
     Indication: Pulmonary arterial hypertension
     Dosage: UNK

REACTIONS (14)
  - Cough [Not Recovered/Not Resolved]
  - Dizziness [Unknown]
  - Thirst [Unknown]
  - Polyuria [Unknown]
  - Headache [Unknown]
  - Diarrhoea [Unknown]
  - Productive cough [Unknown]
  - Abdominal pain upper [Unknown]
  - Flatulence [Unknown]
  - Dyspnoea [Unknown]
  - Nausea [Unknown]
  - Balance disorder [Unknown]
  - Hypertension [Unknown]
  - Feeling abnormal [Unknown]

NARRATIVE: CASE EVENT DATE: 20220101
